FAERS Safety Report 5022856-4 (Version None)
Quarter: 2006Q2

REPORT INFORMATION
  Report Type: 
  Country: None (occurrence: None)
  Receive Date: 20060426
  Receipt Date: 20060321
  Transmission Date: 20061013
  Serious: Yes (Other)
  Sender: FDA-Public Use
  Company Number: 2006041471

PATIENT
  Age: 76 Year
  Sex: Male
  Weight: 88.4514 kg

DRUGS (9)
  1. LYRICA [Suspect]
     Indication: BURNING SENSATION
     Dosage: 50 MG (50 MG, 1 IN 1 D)
     Dates: start: 20060101
  2. LYRICA [Suspect]
     Indication: PAIN IN EXTREMITY
     Dosage: 50 MG (50 MG, 1 IN 1 D)
     Dates: start: 20060101
  3. COUMADIN [Concomitant]
  4. PROTONIX [Concomitant]
  5. MICARDIS [Concomitant]
  6. ASTELIN [Concomitant]
  7. NORVASC [Concomitant]
  8. SPIRIVA [Concomitant]
  9. CENTRUM (MINERALS NOS, VITAMINS NOS) [Concomitant]

REACTIONS (1)
  - WEIGHT INCREASED [None]
